FAERS Safety Report 25280203 (Version 1)
Quarter: 2025Q2

REPORT INFORMATION
  Report Type: Report from Study
  Country: US (occurrence: US)
  Receive Date: 20250507
  Receipt Date: 20250507
  Transmission Date: 20250717
  Serious: Yes (Other)
  Sender: ABBVIE
  Company Number: US-ABBVIE-6265993

PATIENT
  Sex: Male

DRUGS (1)
  1. HUMIRA [Suspect]
     Active Substance: ADALIMUMAB
     Indication: Crohn^s disease
     Route: 058
     Dates: start: 202207

REACTIONS (5)
  - Skin wrinkling [Recovered/Resolved]
  - Migraine [Recovered/Resolved]
  - Tissue irritation [Unknown]
  - Erythema [Unknown]
  - Pain [Unknown]
